FAERS Safety Report 17464546 (Version 1)
Quarter: 2020Q1

REPORT INFORMATION
  Report Type: Spontaneous
  Country: DE (occurrence: DE)
  Receive Date: 20200226
  Receipt Date: 20200226
  Transmission Date: 20200409
  Serious: Yes (Other)
  Sender: FDA-Public Use
  Company Number: NVSC2020DE046913

PATIENT
  Age: 66 Year
  Sex: Male

DRUGS (2)
  1. TACROLIMUS. [Suspect]
     Active Substance: TACROLIMUS
     Indication: LIVER TRANSPLANT
     Dosage: TROUGH TARGET LEVEL 2-4 NG/ML, UNKNOWN DOSE AND FREQ.
     Route: 065
  2. EVEROLIMUS. [Suspect]
     Active Substance: EVEROLIMUS
     Indication: LIVER TRANSPLANT
     Dosage: TROUGH TARGET LEVEL APPROX. 3 NG/ML, UNKNOWN DOSE AND FREQ.
     Route: 065

REACTIONS (1)
  - Osteonecrosis [Unknown]
